FAERS Safety Report 11617000 (Version 3)
Quarter: 2016Q3

REPORT INFORMATION
  Report Type: Spontaneous
  Country: US (occurrence: US)
  Receive Date: 20151009
  Receipt Date: 20160803
  Transmission Date: 20161109
  Serious: Yes (Other)
  Sender: FDA-Public Use
  Company Number: US-BAYER-2015-435172

PATIENT
  Age: 52 Year
  Sex: Female
  Weight: 71.66 kg

DRUGS (2)
  1. LEVAQUIN [Suspect]
     Active Substance: LEVOFLOXACIN
     Dosage: 500 MG, UNK
     Dates: start: 20060720
  2. AVELOX [Suspect]
     Active Substance: MOXIFLOXACIN HYDROCHLORIDE
     Indication: KIDNEY INFECTION
     Dosage: 400 MG, UNK
     Route: 048
     Dates: start: 20061219

REACTIONS (11)
  - Emotional distress [None]
  - Feeling abnormal [None]
  - Musculoskeletal injury [None]
  - Neuropathy peripheral [Not Recovered/Not Resolved]
  - Injury [None]
  - Mental disorder [None]
  - Pain [None]
  - Nervous system disorder [None]
  - Skin injury [None]
  - Cardiovascular disorder [None]
  - Anxiety [None]

NARRATIVE: CASE EVENT DATE: 200608
